FAERS Safety Report 12887352 (Version 1)
Quarter: 2016Q4

REPORT INFORMATION
  Report Type: Report from Study
  Country: US (occurrence: US)
  Receive Date: 20161026
  Receipt Date: 20161026
  Transmission Date: 20170207
  Serious: Yes (Death, Other)
  Sender: FDA-Public Use
  Company Number: US-JAZZ-2016-US-014531

PATIENT
  Age: 18 Year
  Sex: Female
  Weight: 56 kg

DRUGS (20)
  1. CHLORHEXIDINE GLUCONATE. [Concomitant]
     Active Substance: CHLORHEXIDINE GLUCONATE
     Dosage: 10 ML, QD
     Route: 048
  2. DEFIBROTIDE (INV) [Suspect]
     Active Substance: DEFIBROTIDE SODIUM
     Indication: VENOOCCLUSIVE DISEASE
     Dosage: 6.25 MG/KG Q6H (24.7)
     Route: 042
     Dates: start: 20130430, end: 20130528
  3. FACTOR VLLA, RECOMBINANT [Concomitant]
     Dosage: 2000 ?G, SINGLE
     Route: 042
  4. IMMUNE GLOBULIN [Concomitant]
     Active Substance: HUMAN IMMUNOGLOBULIN G
     Dosage: 25 G, Q 7 DAYS
     Route: 042
  5. CIPROFLOXACIN. [Concomitant]
     Active Substance: CIPROFLOXACIN
     Dosage: 1 APPLICATION BOTH EYES
     Route: 047
  6. FILGRASTIM [Concomitant]
     Active Substance: FILGRASTIM
     Dosage: 600 ?G, Q 24 HOUR
     Route: 042
  7. CALCIUM GLUCONATE. [Concomitant]
     Active Substance: CALCIUM GLUCONATE
     Dosage: 1 G, Q 2 HOUR
     Route: 042
  8. POTASSIUM CHLORIDE. [Suspect]
     Active Substance: POTASSIUM CHLORIDE
     Dosage: 20 MEQ, QH
     Route: 042
  9. ARTIFICIAL TEARS [Concomitant]
     Active Substance: GLYCERIN\HYPROMELLOSES\POLYETHYLENE GLYCOL 400
     Dosage: 1 APPLICATION, BOTH EYES
     Route: 047
  10. HYDROPHILIC [Concomitant]
     Dosage: 1 APPLICATION, TID
     Route: 061
  11. MAGNESIUM SULFATE. [Concomitant]
     Active Substance: MAGNESIUM SULFATE
     Dosage: 1000 MG, Q 6 HOURS, PRN
     Route: 042
  12. AMPHOTERICIN B. [Concomitant]
     Active Substance: AMPHOTERICIN B
     Dosage: 200 MG, UNK
     Route: 042
  13. CYTOMEGALOVIRUS IMMUNE GLOBULIN [Concomitant]
     Dosage: 10000 MG, SINGLE
     Route: 042
  14. GANCICLOVIR. [Concomitant]
     Active Substance: GANCICLOVIR
     Dosage: 1.236 MG/KG, Q 24 HOUR
     Route: 042
  15. LACTULOSE. [Concomitant]
     Active Substance: LACTULOSE
     Dosage: 30 ML
     Route: 048
  16. DIPHENHYDRAMINE HCL [Concomitant]
     Active Substance: DIPHENHYDRAMINE HYDROCHLORIDE
     Dosage: 50 MG, Q 6 HOURS, PRN
     Route: 042
  17. MEROPENEM. [Concomitant]
     Active Substance: MEROPENEM
     Dosage: 1 G, Q 12 HOURS
     Route: 042
  18. METHYLPREDNISOLONE. [Concomitant]
     Active Substance: METHYLPREDNISOLONE
     Dosage: 1.02 MG/KG, Q 12 HOURS
     Route: 042
  19. URSODIOL. [Concomitant]
     Active Substance: URSODIOL
     Dosage: 5 MG/KG, BID
  20. MUPIROCIN. [Concomitant]
     Active Substance: MUPIROCIN
     Dosage: 1 APPLICATION
     Route: 061

REACTIONS (1)
  - Multiple organ dysfunction syndrome [Fatal]

NARRATIVE: CASE EVENT DATE: 20130601
